FAERS Safety Report 14080280 (Version 4)
Quarter: 2018Q4

REPORT INFORMATION
  Report Type: Spontaneous
  Country: JP (occurrence: JP)
  Receive Date: 20171012
  Receipt Date: 20181203
  Transmission Date: 20190204
  Serious: Yes (Hospitalization, Other)
  Sender: FDA-Public Use
  Company Number: JP-PFIZER INC-2017434454

PATIENT
  Age: 5 Year
  Sex: Male

DRUGS (5)
  1. TEICOPLANIN [Suspect]
     Active Substance: TEICOPLANIN
     Indication: STREPTOCOCCAL BACTERAEMIA
     Dosage: UNK
     Route: 042
  2. CYTARABINE. [Suspect]
     Active Substance: CYTARABINE
     Indication: ACUTE MYELOID LEUKAEMIA
     Dosage: UNK
  3. MEROPENEM. [Suspect]
     Active Substance: MEROPENEM
     Indication: STREPTOCOCCAL BACTERAEMIA
     Dosage: UNK
     Route: 042
  4. MITOXANTRONE HCL [Suspect]
     Active Substance: MITOXANTRONE HYDROCHLORIDE
     Indication: ACUTE MYELOID LEUKAEMIA
     Dosage: UNK
  5. PIPERACILLIN/TAZOBACTAM [Suspect]
     Active Substance: PIPERACILLIN SODIUM\TAZOBACTAM SODIUM
     Indication: STREPTOCOCCAL BACTERAEMIA
     Dosage: UNK
     Route: 042

REACTIONS (1)
  - Botulism [Recovered/Resolved]
